FAERS Safety Report 13011477 (Version 2)
Quarter: 2018Q1

REPORT INFORMATION
  Report Type: Spontaneous
  Country: US (occurrence: US)
  Receive Date: 20161209
  Receipt Date: 20180105
  Transmission Date: 20180508
  Serious: No
  Sender: FDA-Public Use
  Company Number: US-009507513-1611USA006026

PATIENT
  Age: 18 Year
  Sex: Female
  Weight: 60.32 kg

DRUGS (1)
  1. NEXPLANON [Suspect]
     Active Substance: ETONOGESTREL
     Dosage: LEFT ARM
     Route: 059
     Dates: start: 2013, end: 20161027

REACTIONS (5)
  - Surgery [Recovered/Resolved]
  - Complication associated with device [Recovered/Resolved]
  - Device deployment issue [Recovered/Resolved]
  - Incorrect drug administration duration [Unknown]
  - Device difficult to use [Recovered/Resolved]

NARRATIVE: CASE EVENT DATE: 2016
